FAERS Safety Report 5389357-5 (Version None)
Quarter: 2007Q3

REPORT INFORMATION
  Report Type: 
  Country: None (occurrence: None)
  Receive Date: 20070713
  Receipt Date: 20070713
  Transmission Date: 20080115
  Serious: Yes (Hospitalization, Other)
  Sender: FDA-Public Use
  Company Number: None

PATIENT
  Age: 2 Year
  Sex: Male
  Weight: 11.3399 kg

DRUGS (2)
  1. TIGAN [Suspect]
     Indication: VOMITING
     Dates: start: 20070215, end: 20070215
  2. TRIMTHEOBENZAMIDE [Suspect]
     Indication: DIARRHOEA

REACTIONS (2)
  - CONTRAINDICATION TO MEDICAL TREATMENT [None]
  - LOSS OF CONSCIOUSNESS [None]
